FAERS Safety Report 23485166 (Version 1)
Quarter: 2024Q1

REPORT INFORMATION
  Report Type: Spontaneous
  Country: US (occurrence: US)
  Receive Date: 20240206
  Receipt Date: 20240206
  Transmission Date: 20240409
  Serious: No
  Sender: FDA-Public Use
  Company Number: US-SA-SAC20240128000012

PATIENT
  Sex: Female

DRUGS (7)
  1. DUPIXENT [Suspect]
     Active Substance: DUPILUMAB
     Indication: Dermatitis atopic
     Dosage: 200 MG, QOW
     Route: 058
     Dates: start: 20190820
  2. ALBUTEROL SULFATE [Concomitant]
     Active Substance: ALBUTEROL SULFATE
  3. AZITHROMYCIN [Concomitant]
     Active Substance: AZITHROMYCIN
  4. DESONIDE [Concomitant]
     Active Substance: DESONIDE
  5. EPINEPHRINE [Concomitant]
     Active Substance: EPINEPHRINE
  6. PANTOPRAZOLE [Concomitant]
     Active Substance: PANTOPRAZOLE
  7. AUVI-Q [Concomitant]
     Active Substance: EPINEPHRINE

REACTIONS (3)
  - Ligament sprain [Unknown]
  - Impaired quality of life [Unknown]
  - Drug ineffective [Unknown]
